FAERS Safety Report 6449259-X (Version None)
Quarter: 2009Q4

REPORT INFORMATION
  Report Type: 
  Country: None (occurrence: None)
  Receive Date: 20091113
  Receipt Date: 20080822
  Transmission Date: 20100525
  Serious: Yes (Other)
  Sender: FDA-Public Use
  Company Number: 200813984

PATIENT
  Age: 69 Year
  Sex: Female
  Weight: 71.2147 kg

DRUGS (4)
  1. VIVAGLOBIN [Suspect]
     Indication: COMBINED IMMUNODEFICIENCY
     Dosage: 69 ML DAILY SC
     Route: 058
     Dates: start: 20080820, end: 20080820
  2. VALIUM [Concomitant]
  3. MULTIPLE VITAMINS [Concomitant]
  4. SLEEPING PILL (LITTLE WHITE PILL) [Concomitant]

REACTIONS (13)
  - ABDOMINAL DISTENSION [None]
  - CHEST PAIN [None]
  - GAIT DISTURBANCE [None]
  - GENERALISED ERYTHEMA [None]
  - INFUSION SITE ERYTHEMA [None]
  - INFUSION SITE PAIN [None]
  - INFUSION SITE SWELLING [None]
  - INFUSION SITE WARMTH [None]
  - MICTURITION URGENCY [None]
  - PAIN [None]
  - PRURITUS [None]
  - SWELLING [None]
  - VULVOVAGINAL DISCOMFORT [None]
